FAERS Safety Report 4914177-2 (Version None)
Quarter: 2006Q1

REPORT INFORMATION
  Report Type: 
  Country: None (occurrence: None)
  Receive Date: 20060213
  Receipt Date: 20060131
  Transmission Date: 20060701
  Serious: Yes (Life-Threatening, Hospitalization)
  Sender: FDA-Public Use
  Company Number: 2005JP002322

PATIENT
  Age: 55 Year
  Sex: Female
  Weight: 47 kg

DRUGS (8)
  1. PROGRAF [Suspect]
     Indication: MYASTHENIA GRAVIS
     Dosage: SEE IMAGE
     Route: 054
     Dates: start: 20050601, end: 20050604
  2. PROGRAF [Suspect]
     Indication: MYASTHENIA GRAVIS
     Dosage: SEE IMAGE
     Route: 054
     Dates: start: 20050605, end: 20050607
  3. PREDNISOLONE [Suspect]
     Indication: MYASTHENIA GRAVIS
     Dosage: SEE IMAGE
     Route: 054
     Dates: start: 20050601, end: 20050604
  4. PREDNISOLONE [Suspect]
     Indication: MYASTHENIA GRAVIS
     Dosage: SEE IMAGE
     Route: 054
     Dates: start: 20050605, end: 20050607
  5. MESTINON [Suspect]
     Indication: MYASTHENIA GRAVIS
     Dosage: SEE IMAGE
     Route: 054
     Dates: start: 20050531, end: 20050604
  6. MESTINON [Suspect]
     Indication: MYASTHENIA GRAVIS
     Dosage: SEE IMAGE
     Route: 054
     Dates: start: 20050605, end: 20050607
  7. FOY (GABEXATE MESILATE) [Concomitant]
  8. ROCEPHIN [Concomitant]

REACTIONS (5)
  - ABDOMINAL ABSCESS [None]
  - ADENOCARCINOMA PANCREAS [None]
  - CHOLECYSTITIS ACUTE [None]
  - CHOLELITHIASIS [None]
  - WOUND DEHISCENCE [None]
